FAERS Safety Report 16112581 (Version 1)
Quarter: 2019Q1

REPORT INFORMATION
  Report Type: Spontaneous
  Country: US (occurrence: US)
  Receive Date: 20190325
  Receipt Date: 20190325
  Transmission Date: 20190418
  Serious: No
  Sender: FDA-Public Use
  Company Number: US-PFIZER INC-2019119589

PATIENT
  Age: 60 Year
  Sex: Female

DRUGS (1)
  1. CLINDAMYCIN HCL [Suspect]
     Active Substance: CLINDAMYCIN HYDROCHLORIDE
     Dosage: 150 MG, UNK (TOLERATED)

REACTIONS (5)
  - Nausea [Unknown]
  - Drug hypersensitivity [Unknown]
  - Urticaria [Unknown]
  - Vomiting [Unknown]
  - Dyspepsia [Unknown]
